FAERS Safety Report 9432903 (Version 2)
Quarter: 2013Q4

REPORT INFORMATION
  Report Type: Report from Study
  Country: US (occurrence: US)
  Receive Date: 20130731
  Receipt Date: 20131101
  Transmission Date: 20140711
  Serious: Yes (Hospitalization, Other)
  Sender: FDA-Public Use
  Company Number: US-ACTELION-A-NJ2010-42596

PATIENT
  Age: 58 Year
  Sex: Female

DRUGS (3)
  1. TRACLEER [Suspect]
     Indication: PULMONARY ARTERIAL HYPERTENSION
     Dosage: UNK
     Route: 048
  2. TRACLEER [Suspect]
     Dosage: UNK
     Route: 048
     Dates: start: 20100330, end: 2010
  3. COUMADIN [Concomitant]

REACTIONS (7)
  - Chemotherapy [Unknown]
  - Dyspnoea [Unknown]
  - Bronchitis [Unknown]
  - Chest pain [Unknown]
  - Fatigue [Unknown]
  - Oxygen saturation decreased [Unknown]
  - Malaise [Unknown]
